FAERS Safety Report 7498846-9 (Version None)
Quarter: 2011Q2

REPORT INFORMATION
  Report Type: 
  Country: None (occurrence: None)
  Receive Date: 20110524
  Receipt Date: 20110512
  Transmission Date: 20111010
  Serious: Yes (Other)
  Sender: FDA-Public Use
  Company Number: DE-JNJFOC-20110507397

PATIENT
  Age: 35 Year
  Sex: Female

DRUGS (5)
  1. PREDNISONE [Suspect]
     Indication: BURKITT'S LYMPHOMA
     Route: 065
  2. VINCRISTINE [Suspect]
     Indication: BURKITT'S LYMPHOMA
     Route: 065
  3. RITUXIMAB [Suspect]
     Indication: BURKITT'S LYMPHOMA
     Route: 065
  4. CYCLOPHOSPHAMIDE [Suspect]
     Indication: BURKITT'S LYMPHOMA
     Route: 065
  5. DOXORUBICIN HYDROCHLORIDE [Suspect]
     Indication: BURKITT'S LYMPHOMA
     Route: 042

REACTIONS (2)
  - DRUG EXPOSURE DURING PREGNANCY [None]
  - B-LYMPHOCYTE COUNT DECREASED [None]
